FAERS Safety Report 6366318-0 (Version None)
Quarter: 2009Q3

REPORT INFORMATION
  Report Type: 
  Country: None (occurrence: None)
  Receive Date: 20090921
  Receipt Date: 20090916
  Transmission Date: 20100115
  Serious: Yes (Life-Threatening, Disabling, Other)
  Sender: FDA-Public Use
  Company Number: DE-JNJFOC-20090608724

PATIENT
  Sex: Male

DRUGS (14)
  1. REMINYL [Suspect]
     Indication: DRUG USE FOR UNKNOWN INDICATION
     Route: 065
     Dates: start: 20090219
  2. DIPIPERON [Suspect]
     Indication: DRUG USE FOR UNKNOWN INDICATION
     Route: 048
     Dates: start: 20090219
  3. AMLODIPINE [Concomitant]
     Route: 065
  4. AMLODIPINE [Concomitant]
     Route: 065
  5. MARCUMAR [Concomitant]
     Route: 065
  6. ESIDRIX [Concomitant]
     Route: 065
  7. ESIDRIX [Concomitant]
     Route: 065
  8. CAPTOHEXAL [Concomitant]
     Route: 065
  9. CAPTOHEXAL [Concomitant]
     Route: 065
  10. CIPRALEX [Concomitant]
     Route: 065
  11. CIPRALEX [Concomitant]
     Route: 065
  12. CIPRALEX [Concomitant]
     Route: 065
  13. CIPRALEX [Concomitant]
     Route: 065
  14. CALCIUM [Concomitant]
     Route: 048

REACTIONS (5)
  - CARDIAC ARREST [None]
  - CORONARY ARTERY DISEASE [None]
  - ELECTROCARDIOGRAM QT PROLONGED [None]
  - SYNCOPE [None]
  - TORSADE DE POINTES [None]
